FAERS Safety Report 6260772-0 (Version None)
Quarter: 2009Q3

REPORT INFORMATION
  Report Type: 
  Country: None (occurrence: None)
  Receive Date: 20090706
  Receipt Date: 20090629
  Transmission Date: 20100115
  Serious: Yes (Hospitalization)
  Sender: FDA-Public Use
  Company Number: TPA2009A01645

PATIENT
  Age: 68 Year
  Sex: Female
  Weight: 52.1637 kg

DRUGS (4)
  1. KAPIDEX [Suspect]
     Indication: HYPERCHLORHYDRIA
     Dosage: 60 MG, 1 IN 1 D, PER ORAL
     Route: 048
     Dates: start: 20090411, end: 20090601
  2. PREMARIN [Concomitant]
  3. RESTASIS (CICLOSPORIN) [Concomitant]
  4. MULTI-VITAMINS [Concomitant]

REACTIONS (3)
  - DELIRIUM [None]
  - DIARRHOEA [None]
  - HYPONATRAEMIA [None]
